FAERS Safety Report 23581271 (Version 1)
Quarter: 2024Q1

REPORT INFORMATION
  Report Type: Spontaneous
  Country: RO (occurrence: RO)
  Receive Date: 20240229
  Receipt Date: 20240229
  Transmission Date: 20240409
  Serious: Yes (Life-Threatening)
  Sender: FDA-Public Use
  Company Number: None

PATIENT
  Age: 29 Year
  Sex: Female

DRUGS (3)
  1. GRANISETRON [Suspect]
     Active Substance: GRANISETRON
     Indication: Vomiting
     Dosage: TIME INTERVAL: TOTAL
     Route: 042
     Dates: start: 20240110, end: 20240110
  2. ACETAMINOPHEN [Concomitant]
     Active Substance: ACETAMINOPHEN
     Indication: Analgesic therapy
     Route: 042
  3. Zolinef [Concomitant]
     Indication: Antibiotic therapy
     Route: 042

REACTIONS (2)
  - Pruritus [Recovered/Resolved]
  - Urticaria [Recovered/Resolved]

NARRATIVE: CASE EVENT DATE: 20240110
